FAERS Safety Report 15063532 (Version 1)
Quarter: 2018Q2

REPORT INFORMATION
  Report Type: Report from Study
  Country: US (occurrence: US)
  Receive Date: 20180625
  Receipt Date: 20180625
  Transmission Date: 20180711
  Serious: No
  Sender: FDA-Public Use
  Company Number: US-AMGEN-USASL2016051870

PATIENT
  Age: 46 Year
  Sex: Male

DRUGS (2)
  1. REPATHA [Suspect]
     Active Substance: EVOLOCUMAB
     Indication: DYSLIPIDAEMIA
     Dosage: 140 MG, Q2WK
     Route: 065
     Dates: start: 20160219
  2. BYSTOLIC [Concomitant]
     Active Substance: NEBIVOLOL HYDROCHLORIDE

REACTIONS (9)
  - Throat irritation [Unknown]
  - Formication [Unknown]
  - Fear of injection [Unknown]
  - Hypersensitivity [Unknown]
  - Heart rate increased [Unknown]
  - Nasal pruritus [Unknown]
  - Blood pressure increased [Unknown]
  - Restless legs syndrome [Unknown]
  - Pruritus [Unknown]

NARRATIVE: CASE EVENT DATE: 201602
